FAERS Safety Report 5065810-9 (Version None)
Quarter: 2006Q3

REPORT INFORMATION
  Report Type: 
  Country: None (occurrence: None)
  Receive Date: 20060731
  Receipt Date: 20060721
  Transmission Date: 20061208
  Serious: Yes (Life-Threatening, Hospitalization)
  Sender: FDA-Public Use
  Company Number: 2006AP03408

PATIENT
  Age: 888 Month
  Sex: Male

DRUGS (3)
  1. IRESSA [Suspect]
     Indication: NON-SMALL CELL LUNG CANCER STAGE IV
     Route: 048
     Dates: start: 20060313, end: 20060703
  2. IRESSA [Suspect]
     Indication: METASTASES TO ADRENALS
     Route: 048
     Dates: start: 20060313, end: 20060703
  3. IRESSA [Suspect]
     Indication: METASTASES TO CENTRAL NERVOUS SYSTEM
     Route: 048
     Dates: start: 20060313, end: 20060703

REACTIONS (5)
  - DIARRHOEA [None]
  - HYPOXIA [None]
  - PNEUMONIA [None]
  - SUPERIOR VENA CAVAL OCCLUSION [None]
  - WEIGHT DECREASED [None]
